FAERS Safety Report 13762519 (Version 1)
Quarter: 2017Q3

REPORT INFORMATION
  Report Type: Spontaneous
  Country: US (occurrence: US)
  Receive Date: 20170718
  Receipt Date: 20170718
  Transmission Date: 20171127
  Serious: Yes (Hospitalization)
  Sender: FDA-Public Use
  Company Number: None

PATIENT
  Age: 60 Year
  Sex: Male
  Weight: 101.2 kg

DRUGS (1)
  1. XELODA [Suspect]
     Active Substance: CAPECITABINE
     Dates: end: 20170515

REACTIONS (4)
  - Abscess [None]
  - Culture positive [None]
  - Staphylococcal infection [None]
  - Candida infection [None]

NARRATIVE: CASE EVENT DATE: 20170705
